FAERS Safety Report 18013531 (Version 1)
Quarter: 2020Q3

REPORT INFORMATION
  Report Type: Spontaneous
  Country: GB (occurrence: GB)
  Receive Date: 20200713
  Receipt Date: 20200713
  Transmission Date: 20201103
  Serious: Yes (Hospitalization, Other)
  Sender: FDA-Public Use
  Company Number: GB-ACCORD-189799

PATIENT
  Age: 71 Year
  Sex: Female
  Weight: 53.65 kg

DRUGS (7)
  1. PARACETAMOL [Concomitant]
     Active Substance: ACETAMINOPHEN
  2. SANDO K [Concomitant]
  3. BISOPROLOL [Concomitant]
     Active Substance: BISOPROLOL
  4. CODEINE [Concomitant]
     Active Substance: CODEINE
  5. CAPECITABINE. [Suspect]
     Active Substance: CAPECITABINE
     Indication: ADENOCARCINOMA OF COLON
     Dosage: DAY 1?4 OF CYCLE
     Route: 048
     Dates: end: 20200609
  6. ENOXAPARIN [Concomitant]
     Active Substance: ENOXAPARIN
  7. LOPERAMIDE [Concomitant]
     Active Substance: LOPERAMIDE

REACTIONS (3)
  - Atrial fibrillation [Recovering/Resolving]
  - Palpitations [Unknown]
  - Dyspnoea [Unknown]
